FAERS Safety Report 5286530-1 (Version None)
Quarter: 2007Q2

REPORT INFORMATION
  Report Type: 
  Country: None (occurrence: None)
  Receive Date: 20070404
  Receipt Date: 20070326
  Transmission Date: 20071010
  Serious: Yes (Other)
  Sender: FDA-Public Use
  Company Number: US-SANOFI-SYNTHELABO-A03200702337

PATIENT
  Age: 60 Year
  Sex: Male

DRUGS (10)
  1. UROXATRAL [Suspect]
     Indication: PROSTATE EXAMINATION ABNORMAL
     Route: 048
     Dates: start: 20070323, end: 20070324
  2. CIPRO [Interacting]
     Indication: PROSTATE EXAMINATION ABNORMAL
     Dosage: UNK
     Route: 048
     Dates: start: 20070301
  3. HYDROCHLOROTHIAZIDE [Concomitant]
     Route: 048
  4. TYLENOL [Concomitant]
     Route: 048
  5. WARFARIN SODIUM [Concomitant]
     Route: 048
  6. ASPIRIN [Concomitant]
     Route: 048
  7. ZOCOR [Concomitant]
     Route: 048
  8. TRAMADOL HCL [Concomitant]
     Route: 048
  9. CAPTOPRIL [Concomitant]
     Route: 048
  10. LOPRESSOR [Concomitant]
     Route: 048

REACTIONS (1)
  - DRUG INTERACTION [None]
